FAERS Safety Report 9152908 (Version 1)
Quarter: 2013Q1

REPORT INFORMATION
  Report Type: Spontaneous
  Country: CA (occurrence: CA)
  Receive Date: 20130124
  Receipt Date: 20130124
  Transmission Date: 20140127
  Serious: No
  Sender: FDA-Public Use
  Company Number: CA-RB-048915-13

PATIENT
  Age: 0 Year
  Sex: Female

DRUGS (7)
  1. SUBUTEX [Suspect]
     Indication: DRUG DEPENDENCE
     Route: 064
     Dates: start: 201108
  2. DICLECTIN [Suspect]
     Indication: NAUSEA
     Dosage: FROM 6-13 WEEKS OF PREGNANCY
     Route: 065
     Dates: start: 2011, end: 2011
  3. DICLECTIN [Suspect]
     Indication: VOMITING
     Dosage: FROM 6-13 WEEKS OF PREGNANCY
     Route: 065
     Dates: start: 2011, end: 2011
  4. PANTOLOC [Suspect]
     Indication: GASTROOESOPHAGEAL REFLUX DISEASE
     Dosage: DOSING DETAILS UNKNOWN
     Route: 064
     Dates: end: 20110912
  5. MORPHINE [Suspect]
     Indication: DEPENDENCE
     Route: 064
     Dates: end: 20110827
  6. CODEINE [Suspect]
     Indication: DEPENDENCE
     Route: 064
     Dates: end: 20110827
  7. NICOTINE [Suspect]
     Indication: PRODUCT USED FOR UNKNOWN INDICATION
     Dosage: DOSING DETAILS UNKNOWN
     Route: 064

REACTIONS (2)
  - Hospitalisation [Recovered/Resolved]
  - Foetal exposure during pregnancy [Recovered/Resolved]
